FAERS Safety Report 24307757 (Version 2)
Quarter: 2024Q4

REPORT INFORMATION
  Report Type: Spontaneous
  Country: US (occurrence: US)
  Receive Date: 20240911
  Receipt Date: 20241204
  Transmission Date: 20250114
  Serious: No
  Sender: CELLTRION
  Company Number: US-CELLTRION INC.-2024US017360

PATIENT

DRUGS (4)
  1. ZYMFENTRA [Suspect]
     Active Substance: INFLIXIMAB-DYYB
     Indication: Crohn^s disease
     Dosage: 120 MG, ONCE EVERY TWO WEEKS
     Route: 058
     Dates: start: 20240710
  2. ZYMFENTRA [Suspect]
     Active Substance: INFLIXIMAB-DYYB
     Dosage: 120 MG, ONCE EVERY TWO WEEKS
     Route: 058
     Dates: start: 20240724
  3. ZYMFENTRA [Suspect]
     Active Substance: INFLIXIMAB-DYYB
     Dosage: 120 MG, ONCE EVERY TWO WEEKS
     Route: 058
     Dates: start: 20240807
  4. ZYMFENTRA [Suspect]
     Active Substance: INFLIXIMAB-DYYB
     Dosage: 120 MG, ONCE EVERY TWO WEEKS
     Route: 058
     Dates: start: 20240904

REACTIONS (2)
  - Brain fog [Recovered/Resolved]
  - Injection site pain [Recovered/Resolved]

NARRATIVE: CASE EVENT DATE: 20240710
